FAERS Safety Report 12886304 (Version 3)
Quarter: 2016Q4

REPORT INFORMATION
  Report Type: Spontaneous
  Country: US (occurrence: US)
  Receive Date: 20161026
  Receipt Date: 20161117
  Transmission Date: 20170207
  Serious: No
  Sender: FDA-Public Use
  Company Number: US-PFIZER INC-2016499047

PATIENT
  Age: 62 Year
  Sex: Female

DRUGS (3)
  1. CELEBREX [Suspect]
     Active Substance: CELECOXIB
     Indication: RHEUMATOID ARTHRITIS
     Dosage: 100 MG, 2X/DAY
     Dates: start: 2010
  2. ROBAXIN [Suspect]
     Active Substance: METHOCARBAMOL
     Indication: SPINAL LAMINECTOMY
     Dosage: 500 MG, 1X/DAY
     Dates: start: 1989
  3. FLEXERIL [Suspect]
     Active Substance: CYCLOBENZAPRINE HYDROCHLORIDE
     Indication: SPINAL LAMINECTOMY
     Dosage: 10 MG, 1X/DAY
     Dates: start: 1984

REACTIONS (1)
  - Drug ineffective [Unknown]
